FAERS Safety Report 17366385 (Version 2)
Quarter: 2020Q1

REPORT INFORMATION
  Report Type: Spontaneous
  Country: US (occurrence: US)
  Receive Date: 20200118
  Receipt Date: 20200118
  Transmission Date: 20200409
  Serious: Yes (Hospitalization)
  Sender: FDA-Public Use
  Company Number: None

PATIENT
  Age: 57 Year
  Sex: Female

DRUGS (1)
  1. AMBRISENTAN 10MG TABLETS 30/BO: 10MG [Suspect]
     Active Substance: AMBRISENTAN
     Indication: PULMONARY ARTERIAL HYPERTENSION
     Route: 048
     Dates: start: 20120405, end: 20191223

REACTIONS (5)
  - International normalised ratio increased [None]
  - Adenocarcinoma pancreas [None]
  - Abdominal pain [None]
  - Haematuria [None]
  - Jaundice cholestatic [None]

NARRATIVE: CASE EVENT DATE: 20191222
